FAERS Safety Report 6063400-2 (Version None)
Quarter: 2009Q1

REPORT INFORMATION
  Report Type: 
  Country: None (occurrence: None)
  Receive Date: 20090203
  Receipt Date: 20090122
  Transmission Date: 20090719
  Serious: Yes (Hospitalization)
  Sender: FDA-Public Use
  Company Number: PHHO2009FR01323

PATIENT
  Sex: Female
  Weight: 23 kg

DRUGS (4)
  1. ZOLEDRONIC ACID [Suspect]
     Indication: BONE SARCOMA
     Dosage: 1.15MG
     Route: 042
     Dates: start: 20090119
  2. METHOTREXATE [Suspect]
     Dosage: 11 G, UNK
     Route: 042
     Dates: start: 20090116
  3. VITAMIN D [Concomitant]
  4. CALCIUM [Concomitant]

REACTIONS (3)
  - CYTOLYTIC HEPATITIS [None]
  - DRUG CLEARANCE DECREASED [None]
  - VOMITING [None]
